FAERS Safety Report 7035356-7 (Version None)
Quarter: 2010Q4

REPORT INFORMATION
  Report Type: 
  Country: None (occurrence: None)
  Receive Date: 20101008
  Receipt Date: 20100929
  Transmission Date: 20110411
  Serious: Yes (Hospitalization)
  Sender: FDA-Public Use
  Company Number: US-KINGPHARMUSA00001-K201001229

PATIENT
  Age: 63 Year
  Sex: Female
  Weight: 58.05 kg

DRUGS (1)
  1. LEVOXYL [Suspect]
     Indication: THYROIDECTOMY
     Dosage: 50 MCG, QD
     Route: 048
     Dates: start: 20010101

REACTIONS (10)
  - BLOOD GLUCOSE INCREASED [None]
  - COELIAC DISEASE [None]
  - GASTROINTESTINAL FUNGAL INFECTION [None]
  - GLUCOSE TOLERANCE IMPAIRED [None]
  - MIDDLE INSOMNIA [None]
  - OSTEOPOROSIS [None]
  - POLLAKIURIA [None]
  - SMALL INTESTINAL OBSTRUCTION [None]
  - THYROID DISORDER [None]
  - VOMITING [None]
